FAERS Safety Report 10058209 (Version 2)
Quarter: 2014Q2

REPORT INFORMATION
  Report Type: Spontaneous
  Country: US (occurrence: US)
  Receive Date: 20140404
  Receipt Date: 20140404
  Transmission Date: 20141212
  Serious: Yes (Other)
  Sender: FDA-Public Use
  Company Number: US-GE HEALTHCARE MEDICAL DIAGNOSTICS-OSCN-PR-0807S-0466

PATIENT
  Sex: Female

DRUGS (3)
  1. MAGNEVIST [Suspect]
     Indication: RENAL FAILURE CHRONIC
     Route: 042
     Dates: start: 20050511, end: 20050511
  2. MAGNEVIST [Suspect]
     Indication: RENAL FAILURE CHRONIC
     Route: 042
     Dates: start: 20050810, end: 20050810
  3. MAGNEVIST [Suspect]
     Indication: RENAL FAILURE CHRONIC
     Dates: start: 20060626, end: 20060626

REACTIONS (1)
  - Nephrogenic systemic fibrosis [Not Recovered/Not Resolved]
